FAERS Safety Report 9572141 (Version 1)
Quarter: 2013Q4

REPORT INFORMATION
  Report Type: Spontaneous
  Country: FR (occurrence: FR)
  Receive Date: 20131001
  Receipt Date: 20131001
  Transmission Date: 20140711
  Serious: Yes (Hospitalization)
  Sender: FDA-Public Use
  Company Number: FR-PFIZER INC-2013274655

PATIENT
  Age: 13 Year
  Sex: Male
  Weight: 52 kg

DRUGS (3)
  1. ADVIL [Suspect]
     Indication: HEADACHE
     Dosage: 400 MG, 3X/DAY
     Route: 048
     Dates: start: 20130830, end: 20130909
  2. DOLIPRANE [Concomitant]
     Indication: HEADACHE
     Dosage: 1000 MG, 3X/DAY
     Route: 048
     Dates: start: 20130830, end: 20130909
  3. AUGMENTIN [Concomitant]
     Indication: PYREXIA
     Dosage: 1 G, 2X/DAY
     Route: 048
     Dates: start: 20130830, end: 20130909

REACTIONS (7)
  - Renal impairment [Not Recovered/Not Resolved]
  - Proteinuria [Not Recovered/Not Resolved]
  - Tubulointerstitial nephritis [Not Recovered/Not Resolved]
  - Diarrhoea [Unknown]
  - Abdominal pain [Unknown]
  - Hyponatraemia [Unknown]
  - Hypoproteinaemia [Unknown]
